FAERS Safety Report 20790242 (Version 1)
Quarter: 2022Q2

REPORT INFORMATION
  Report Type: Spontaneous
  Country: US (occurrence: US)
  Receive Date: 20220505
  Receipt Date: 20220505
  Transmission Date: 20220721
  Serious: No
  Sender: FDA-Public Use
  Company Number: US-MYLANLABS-2022M1031780

PATIENT
  Sex: Male

DRUGS (2)
  1. MUSE [Suspect]
     Active Substance: ALPROSTADIL
     Indication: Product used for unknown indication
     Dosage: 250 MICROGRAM, 5XW
     Route: 066
     Dates: start: 20210629
  2. MUSE [Suspect]
     Active Substance: ALPROSTADIL
     Dosage: 500 MICROGRAM
     Route: 066

REACTIONS (1)
  - Drug ineffective [Unknown]
